FAERS Safety Report 10026011 (Version 1)
Quarter: 2014Q1

REPORT INFORMATION
  Report Type: Spontaneous
  Country: DE (occurrence: None)
  Receive Date: 20140318
  Receipt Date: 20140318
  Transmission Date: 20141002
  Serious: Yes (Hospitalization)
  Sender: FDA-Public Use
  Company Number: 1403-0486

PATIENT
  Age: 88 Year
  Sex: Male

DRUGS (2)
  1. EYELEA [Suspect]
     Indication: AGE-RELATED MACULAR DEGENERATION
     Route: 031
     Dates: start: 20130319, end: 20130319
  2. LUCENTIS (RANIBIZUMAB) [Concomitant]

REACTIONS (2)
  - Myocardial infarction [None]
  - Cardiac failure [None]
